FAERS Safety Report 23116949 (Version 1)
Quarter: 2023Q4

REPORT INFORMATION
  Report Type: Spontaneous
  Country: US (occurrence: None)
  Receive Date: 20231027
  Receipt Date: 20231027
  Transmission Date: 20240109
  Serious: Yes (Hospitalization, Other)
  Sender: FDA-Public Use
  Company Number: None

PATIENT
  Sex: Male
  Weight: 117.93 kg

DRUGS (11)
  1. WELLBUTRIN XL [Suspect]
     Active Substance: BUPROPION HYDROCHLORIDE
  2. ALLOPURINOL 100MG [Concomitant]
  3. DESVENLAFAXINE 100MG [Concomitant]
  4. METOPROLOL 25MG [Concomitant]
  5. RIVAROXABAN 20MG [Concomitant]
  6. PRAVASTATIN 80 MG [Concomitant]
  7. OLMESARTAN 10MG [Concomitant]
  8. FAMOTIDINE 20MG [Concomitant]
  9. FISH OIL 1200MG [Concomitant]
  10. MAGNESIUM 250MG TWICE DAILY [Concomitant]
  11. COQ10 SUPPLEMENT 200MG [Concomitant]

REACTIONS (8)
  - Meningitis aseptic [None]
  - Tinnitus [None]
  - Dizziness [None]
  - Dysarthria [None]
  - Facial paralysis [None]
  - Paraesthesia [None]
  - Eye disorder [None]
  - Therapy cessation [None]
